FAERS Safety Report 5877561-9 (Version None)
Quarter: 2008Q3

REPORT INFORMATION
  Report Type: 
  Country: None (occurrence: None)
  Receive Date: 20080911
  Receipt Date: 20080903
  Transmission Date: 20090109
  Serious: Yes (Other)
  Sender: FDA-Public Use
  Company Number: CHNY2008BR03287

PATIENT
  Age: 75 Year
  Sex: Female
  Weight: 60 kg

DRUGS (2)
  1. CATAFLAM [Suspect]
     Indication: NECK PAIN
     Dosage: UNK
     Route: 061
     Dates: start: 20080827
  2. CATAFLAM [Suspect]
     Indication: NECK PAIN
     Dosage: UNK
     Route: 061
     Dates: start: 20080827

REACTIONS (8)
  - APPLICATION SITE ERYTHEMA [None]
  - APPLICATION SITE VESICLES [None]
  - BLISTER [None]
  - BLOOD PRESSURE DECREASED [None]
  - ERYTHEMA [None]
  - HERPES VIRUS INFECTION [None]
  - SKIN BURNING SENSATION [None]
  - SYNCOPE [None]
